FAERS Safety Report 23252506 (Version 1)
Quarter: 2023Q4

REPORT INFORMATION
  Report Type: Spontaneous
  Country: IT (occurrence: IT)
  Receive Date: 20231201
  Receipt Date: 20231201
  Transmission Date: 20240110
  Serious: Yes (Death, Other)
  Sender: FDA-Public Use
  Company Number: IT-Blueprint Medicines Corporation-LT-IT-2023-001940

PATIENT
  Age: 61 Year
  Sex: Male

DRUGS (2)
  1. AVAPRITINIB [Suspect]
     Active Substance: AVAPRITINIB
     Indication: Mastocytic leukaemia
     Route: 065
  2. MIDOSTAURIN [Suspect]
     Active Substance: MIDOSTAURIN
     Indication: Mantle cell lymphoma
     Route: 065
     Dates: start: 202107

REACTIONS (5)
  - Disease progression [Fatal]
  - Ascites [Unknown]
  - Pleural effusion [Unknown]
  - Confusional state [Unknown]
  - Metabolic acidosis [Unknown]
